FAERS Safety Report 9658858 (Version 1)
Quarter: 2013Q4

REPORT INFORMATION
  Report Type: Spontaneous
  Country: US (occurrence: US)
  Receive Date: 20131030
  Receipt Date: 20131030
  Transmission Date: 20140711
  Serious: Yes (Other)
  Sender: FDA-Public Use
  Company Number: US-PFIZER INC-2013304717

PATIENT
  Age: 61 Year
  Sex: Female
  Weight: 86.17 kg

DRUGS (11)
  1. ATENOLOL [Suspect]
     Indication: BLOOD PRESSURE
     Dosage: 100 MG, DAILY
     Route: 048
     Dates: start: 2003
  2. PANTOPRAZOLE [Suspect]
     Dosage: UNK
     Route: 065
  3. NEXIUM [Suspect]
     Indication: GASTROOESOPHAGEAL REFLUX DISEASE
     Dosage: 40 MG, DAILY
     Route: 048
     Dates: start: 2003, end: 201309
  4. HYDROCHLOROTHIAZIDE [Suspect]
     Indication: BLOOD PRESSURE
     Dosage: 25 MG, DAILY
     Route: 048
     Dates: start: 2003
  5. SYNTHROID [Concomitant]
     Indication: THYROID DISORDER
     Dosage: 125 UG, DAILY
     Route: 048
     Dates: start: 2003
  6. IBUPROFEN [Concomitant]
     Indication: PAIN
     Dosage: 800 MG, AS NEEDED
     Route: 048
  7. VENLAFAXINE [Concomitant]
     Indication: DEPRESSION
     Dosage: 100 MG, DAILY
     Route: 048
     Dates: start: 201304
  8. ALPRAZOLAM [Concomitant]
     Indication: SLEEP DISORDER
     Dosage: 0.5 MG, AS NEEDED
     Route: 048
     Dates: start: 2008
  9. MAGNESIUM [Concomitant]
     Indication: SUPPLEMENTATION THERAPY
     Dosage: UNK, DAILY
     Route: 048
  10. CALCIUM [Concomitant]
     Indication: SUPPLEMENTATION THERAPY
     Dosage: UNK, DAILY
     Route: 048
  11. VITAMIN D [Concomitant]
     Indication: SUPPLEMENTATION THERAPY
     Dosage: 1000 IU, DAILY
     Route: 048

REACTIONS (14)
  - Meniscus injury [Recovered/Resolved]
  - Drug dose omission [Unknown]
  - Gastric disorder [Unknown]
  - Gastrooesophageal reflux disease [Unknown]
  - Sleep disorder due to general medical condition, insomnia type [Unknown]
  - Disease recurrence [Recovering/Resolving]
  - Osteoarthritis [Unknown]
  - Fall [Unknown]
  - Head injury [Unknown]
  - Weight increased [Unknown]
  - Carpal tunnel syndrome [Unknown]
  - Abdominal pain upper [Unknown]
  - Depression [Unknown]
  - Drug ineffective [Unknown]
